FAERS Safety Report 24430471 (Version 1)
Quarter: 2024Q4

REPORT INFORMATION
  Report Type: Spontaneous
  Country: US (occurrence: US)
  Receive Date: 20241013
  Receipt Date: 20241013
  Transmission Date: 20250114
  Serious: No
  Sender: SANOFI AVENTIS
  Company Number: US-SA-2024SA288648

PATIENT
  Sex: Female

DRUGS (1)
  1. DUPIXENT [Suspect]
     Active Substance: DUPILUMAB
     Dosage: UNK
     Route: 065

REACTIONS (10)
  - Rash macular [Unknown]
  - Skin warm [Unknown]
  - Skin discolouration [Unknown]
  - Sleep disorder due to a general medical condition [Unknown]
  - Paraesthesia [Unknown]
  - Lymphadenopathy [Unknown]
  - Abscess drainage [Unknown]
  - Eczema [Unknown]
  - Skin burning sensation [Unknown]
  - Rash [Unknown]

NARRATIVE: CASE EVENT DATE: 20240901
